FAERS Safety Report 5566897-7 (Version None)
Quarter: 2007Q4

REPORT INFORMATION
  Report Type: 
  Country: None (occurrence: None)
  Receive Date: 20071219
  Receipt Date: 20061212
  Transmission Date: 20080405
  Serious: No
  Sender: FDA-Public Use
  Company Number: US-BRISTOL-MYERS SQUIBB COMPANY-13610324

PATIENT
  Sex: Male

DRUGS (6)
  1. PRAVACOL TABS [Suspect]
  2. COUMADIN [Concomitant]
  3. BETAPACE [Concomitant]
  4. SYNTHROID [Concomitant]
  5. PREVACID [Concomitant]
  6. ASPIRIN [Concomitant]

REACTIONS (1)
  - MYALGIA [None]
